FAERS Safety Report 13680266 (Version 1)
Quarter: 2017Q2

REPORT INFORMATION
  Report Type: Other
  Country: JP (occurrence: JP)
  Receive Date: 20170622
  Receipt Date: 20170622
  Transmission Date: 20170830
  Serious: Yes (Hospitalization, Other)
  Sender: FDA-Public Use
  Company Number: JP-ACTELION-A-US2017-155779

PATIENT
  Age: 41 Year
  Sex: Male

DRUGS (8)
  1. VENTAVIS [Suspect]
     Active Substance: ILOPROST
     Indication: PULMONARY ARTERIAL HYPERTENSION
     Dosage: 2.5 MCG, BID
     Route: 055
  2. IMMUNOGLOBULIN (IMMUNOGLOBULIN HUMAN NORMAL) [Concomitant]
     Active Substance: HUMAN IMMUNOGLOBULIN G
  3. MINOCYCLINE HYDROCHLORIDE. [Concomitant]
     Active Substance: MINOCYCLINE HYDROCHLORIDE
  4. VENTAVIS [Suspect]
     Active Substance: ILOPROST
     Dosage: 5 MCG, QD
     Route: 055
  5. CEFTRIAXONE SODIUM. [Concomitant]
     Active Substance: CEFTRIAXONE SODIUM
  6. GENTAMICIN SULFATE. [Concomitant]
     Active Substance: GENTAMICIN SULFATE
  7. BENZYLPENICILLIN POTASSIUM [Concomitant]
     Active Substance: PENICILLIN G POTASSIUM
  8. VENTAVIS [Suspect]
     Active Substance: ILOPROST
     Dosage: 2.5 MCG, BID
     Route: 055

REACTIONS (5)
  - C-reactive protein increased [Recovered/Resolved]
  - Pneumonia [Unknown]
  - White blood cell count increased [Recovered/Resolved]
  - Endocarditis [Recovered/Resolved]
  - Pyrexia [Recovered/Resolved]
